FAERS Safety Report 17834702 (Version 2)
Quarter: 2021Q2

REPORT INFORMATION
  Report Type: Spontaneous
  Country: CA (occurrence: CA)
  Receive Date: 20200528
  Receipt Date: 20210520
  Transmission Date: 20210717
  Serious: Yes (Other)
  Sender: FDA-Public Use
  Company Number: CA-ADVANZ PHARMA-GSH201710-005674

PATIENT

DRUGS (35)
  1. OTEZLA [Suspect]
     Active Substance: APREMILAST
     Route: 065
  2. LEFLUNOMIDE. [Concomitant]
     Active Substance: LEFLUNOMIDE
     Dosage: UNK
     Dates: start: 20030625
  3. HYDROXYCHLOROQUINE SULFATE (AUTHORIZED GENERIC),PLAQUENIL [Suspect]
     Active Substance: HYDROXYCHLOROQUINE SULFATE
     Indication: RHEUMATOID ARTHRITIS
     Dosage: 200 MG, BID
     Route: 048
  4. ARAVA [Suspect]
     Active Substance: LEFLUNOMIDE
     Indication: RHEUMATOID ARTHRITIS
     Dosage: 20 MG, QD
     Route: 048
  5. LEFLUNOMIDE. [Suspect]
     Active Substance: LEFLUNOMIDE
     Indication: PRODUCT USED FOR UNKNOWN INDICATION
     Dosage: 20 MG, QD
     Route: 065
     Dates: start: 20030625, end: 200310
  6. LEFLUNOMIDE. [Suspect]
     Active Substance: LEFLUNOMIDE
     Dosage: 20 MG, QD
     Route: 065
  7. HYDROXYCHLOROQUINE [Suspect]
     Active Substance: HYDROXYCHLOROQUINE
     Indication: RHEUMATOID ARTHRITIS
     Dosage: 200 MG, BID, TABLET
     Route: 065
  8. HYDROXYCHLOROQUINE [Suspect]
     Active Substance: HYDROXYCHLOROQUINE
     Dosage: 200 MG, BID
     Route: 065
  9. SULFASALAZINE. [Suspect]
     Active Substance: SULFASALAZINE
     Indication: PRODUCT USED FOR UNKNOWN INDICATION
     Dosage: 2000 MG, UNK
     Route: 048
     Dates: start: 200707, end: 200712
  10. CELEBREX [Concomitant]
     Active Substance: CELECOXIB
     Indication: RHEUMATOID ARTHRITIS
     Dosage: UNK
  11. HYDROMORPH [Concomitant]
     Active Substance: HYDROMORPHONE
     Dosage: UNK
  12. HUMIRA [Suspect]
     Active Substance: ADALIMUMAB
     Indication: RHEUMATOID ARTHRITIS
     Dosage: UNK
     Route: 058
  13. SIMPONI [Suspect]
     Active Substance: GOLIMUMAB
     Dosage: UNK
     Route: 058
  14. METHOTREXATE. [Suspect]
     Active Substance: METHOTREXATE
     Dosage: UNK
     Route: 065
  15. AMARYL [Suspect]
     Active Substance: GLIMEPIRIDE
     Dosage: UNK
  16. METHOTREXATE. [Concomitant]
     Active Substance: METHOTREXATE
     Indication: RHEUMATOID ARTHRITIS
     Dosage: UNK
     Dates: start: 201601
  17. HYDROMORPHONE HCL [Concomitant]
     Active Substance: HYDROMORPHONE HYDROCHLORIDE
     Dosage: UNK
  18. REMICADE [Suspect]
     Active Substance: INFLIXIMAB
     Indication: RHEUMATOID ARTHRITIS
     Dosage: UNK
     Route: 042
  19. STELARA [Suspect]
     Active Substance: USTEKINUMAB
     Dosage: UNK
     Route: 065
  20. ORENCIA [Suspect]
     Active Substance: ABATACEPT
     Indication: RHEUMATOID ARTHRITIS
     Dosage: UNK
     Route: 065
  21. RITUXAN [Suspect]
     Active Substance: RITUXIMAB
     Indication: RHEUMATOID ARTHRITIS
     Dosage: UNK
     Route: 042
  22. APO?ACETAMINOPHEN [Suspect]
     Active Substance: ACETAMINOPHEN
     Indication: RHEUMATOID ARTHRITIS
     Dosage: UNK UNK, PRN
     Route: 065
  23. TYLENOL [Suspect]
     Active Substance: ACETAMINOPHEN
     Indication: RHEUMATOID ARTHRITIS
     Dosage: UNK
     Route: 065
  24. TYLENOL [Concomitant]
     Active Substance: ACETAMINOPHEN
     Indication: RHEUMATOID ARTHRITIS
     Dosage: UNK
  25. MELOXICAM. [Concomitant]
     Active Substance: MELOXICAM
     Indication: RHEUMATOID ARTHRITIS
     Dosage: UNK
  26. SYNTHROID [Concomitant]
     Active Substance: LEVOTHYROXINE SODIUM
     Dosage: UNK
  27. PARACETAMOL [Suspect]
     Active Substance: ACETAMINOPHEN
     Indication: RHEUMATOID ARTHRITIS
     Dosage: 325 MG
     Route: 065
  28. CIMZIA [Suspect]
     Active Substance: CERTOLIZUMAB PEGOL
     Dosage: UNK
     Route: 058
  29. ACETAMINOPHEN;CODEINE PHOSPHATE [Suspect]
     Active Substance: ACETAMINOPHEN\CODEINE PHOSPHATE
     Dosage: UNK
     Route: 065
  30. CODEINE PHOSPHATE [Concomitant]
     Active Substance: CODEINE PHOSPHATE
     Dosage: UNK
  31. ACTEMRA [Suspect]
     Active Substance: TOCILIZUMAB
     Indication: RHEUMATOID ARTHRITIS
     Dosage: UNK
     Route: 065
  32. ENBREL [Suspect]
     Active Substance: ETANERCEPT
     Indication: RHEUMATOID ARTHRITIS
     Dosage: 50 MG, WEEKLY
     Route: 065
     Dates: start: 200310, end: 200706
  33. ACETAMINOPHEN, DIPHENHYDRAMINE  HYDROCHLORIDE [Suspect]
     Active Substance: ACETAMINOPHEN\DIPHENHYDRAMINE HYDROCHLORIDE
     Dosage: UNK
     Route: 065
  34. PREDNISONE. [Suspect]
     Active Substance: PREDNISONE
     Dosage: UNK
     Route: 065
  35. ACETAMINOPHEN, CODEINE PHOSPHATE [Concomitant]
     Dosage: UNK

REACTIONS (43)
  - Malaise [Unknown]
  - Pain [Unknown]
  - Peripheral swelling [Unknown]
  - C-reactive protein abnormal [Unknown]
  - Arthropathy [Unknown]
  - Neutrophil count increased [Unknown]
  - Weight decreased [Unknown]
  - Visual impairment [Unknown]
  - Condition aggravated [Unknown]
  - Infection [Unknown]
  - Lymphocyte count increased [Unknown]
  - Nasal congestion [Unknown]
  - Gastric disorder [Unknown]
  - Nephrolithiasis [Unknown]
  - Joint swelling [Unknown]
  - Tooth abscess [Unknown]
  - White blood cell count increased [Unknown]
  - Glycosylated haemoglobin increased [Unknown]
  - Heart rate increased [Unknown]
  - Nasopharyngitis [Unknown]
  - Somnolence [Unknown]
  - Off label use [Unknown]
  - Contraindicated product administered [Unknown]
  - Blood pressure increased [Unknown]
  - Hepatic enzyme increased [Unknown]
  - Drug ineffective [Unknown]
  - Drug intolerance [Unknown]
  - Gait disturbance [Unknown]
  - Loss of personal independence in daily activities [Unknown]
  - Arthralgia [Unknown]
  - Fatigue [Unknown]
  - Pain in extremity [Unknown]
  - Red blood cell sedimentation rate increased [Unknown]
  - Blood glucose increased [Unknown]
  - Musculoskeletal stiffness [Unknown]
  - Pyrexia [Unknown]
  - Red cell distribution width increased [Unknown]
  - Osteopenia [Unknown]
  - Treatment failure [Unknown]
  - Rheumatoid arthritis [Unknown]
  - Femur fracture [Unknown]
  - Nausea [Unknown]
  - Product use issue [Unknown]
